FAERS Safety Report 21568108 (Version 2)
Quarter: 2022Q4

REPORT INFORMATION
  Report Type: Spontaneous
  Country: JP (occurrence: JP)
  Receive Date: 20221108
  Receipt Date: 20221126
  Transmission Date: 20230112
  Serious: Yes (Hospitalization)
  Sender: FDA-Public Use
  Company Number: JP-TEVA-2022-JP-2824311

PATIENT
  Age: 88 Year
  Sex: Male

DRUGS (2)
  1. IMATINIB [Suspect]
     Active Substance: IMATINIB
     Indication: Philadelphia positive chronic myeloid leukaemia
     Dosage: 100 MG
     Route: 065
     Dates: start: 201404
  2. IMATINIB [Suspect]
     Active Substance: IMATINIB
     Dosage: 200 MG
     Route: 065
     Dates: start: 2014, end: 2014

REACTIONS (6)
  - Renal impairment [Recovering/Resolving]
  - Respiratory failure [Unknown]
  - Respiratory distress [Recovering/Resolving]
  - Pleural effusion [Unknown]
  - Pulmonary oedema [Unknown]
  - Hypertension [Recovering/Resolving]

NARRATIVE: CASE EVENT DATE: 20140101
